FAERS Safety Report 6195845-4 (Version None)
Quarter: 2009Q2

REPORT INFORMATION
  Report Type: 
  Country: None (occurrence: None)
  Receive Date: 20090520
  Receipt Date: 20071212
  Transmission Date: 20091009
  Serious: Yes (Other)
  Sender: FDA-Public Use
  Company Number: US-ASTRAZENECA-2007UW16277

PATIENT
  Age: 13813 Day
  Sex: Male
  Weight: 99.8 kg

DRUGS (21)
  1. SEROQUEL [Suspect]
     Indication: MIGRAINE
     Dosage: 100-200 MG
     Route: 048
     Dates: start: 20010926
  2. SEROQUEL [Suspect]
     Route: 048
     Dates: start: 20010901
  3. DEPAKOTE [Concomitant]
     Dosage: 1000- 1500 MG
     Route: 048
  4. ZOMIG [Concomitant]
     Route: 048
  5. VICODIN [Concomitant]
     Route: 065
  6. ELAVIL [Concomitant]
     Route: 065
  7. IMITREX [Concomitant]
     Dosage: 100-200 MG
     Route: 065
  8. ZANAFLEX [Concomitant]
     Dosage: 100-300 MG
     Route: 065
  9. LISINOPRIL [Concomitant]
     Dosage: 2.5-5 MG
     Route: 065
  10. METFORMIN HCL [Concomitant]
     Dosage: 500-850 MG
     Route: 048
  11. PHENERGAN [Concomitant]
     Route: 048
  12. ANAPROX DS [Concomitant]
     Route: 065
  13. FLEXERIL [Concomitant]
     Indication: MUSCLE SPASMS
     Route: 048
  14. BACLOFEN [Concomitant]
     Indication: MUSCLE SPASMS
     Dosage: 40-80 MG
     Route: 048
  15. ZONEGRAN [Concomitant]
     Dosage: 100-200 MG
     Route: 065
  16. AMERGE [Concomitant]
     Route: 048
  17. SKELAXIN [Concomitant]
     Route: 048
  18. MEDROL [Concomitant]
     Route: 048
  19. REGLAN [Concomitant]
     Route: 065
  20. MORPHINE [Concomitant]
     Indication: HEADACHE
     Route: 065
  21. MIGRANAL [Concomitant]
     Route: 045

REACTIONS (15)
  - ABSCESS [None]
  - ARTHRALGIA [None]
  - BACK PAIN [None]
  - CARDIOMYOPATHY [None]
  - CYST [None]
  - HAEMATURIA [None]
  - HEART INJURY [None]
  - HYPERLIPIDAEMIA [None]
  - HYPERTENSION [None]
  - JOINT SWELLING [None]
  - LUMBAR RADICULOPATHY [None]
  - NEPHROLITHIASIS [None]
  - PAIN IN EXTREMITY [None]
  - SYNCOPE [None]
  - TYPE 2 DIABETES MELLITUS [None]
